FAERS Safety Report 7373332-5 (Version None)
Quarter: 2011Q1

REPORT INFORMATION
  Report Type: 
  Country: None (occurrence: None)
  Receive Date: 20110324
  Receipt Date: 20110317
  Transmission Date: 20110831
  Serious: Yes (Hospitalization)
  Sender: FDA-Public Use
  Company Number: US-RB-024156-11

PATIENT
  Age: 43 Year
  Sex: Female

DRUGS (1)
  1. SUBOXONE [Suspect]
     Indication: PRODUCT USED FOR UNKNOWN INDICATION
     Dosage: DOSING INFORMATION UNKNOWN
     Route: 065
     Dates: end: 20110301

REACTIONS (8)
  - INTENTIONAL DRUG MISUSE [None]
  - INFLUENZA LIKE ILLNESS [None]
  - RHINORRHOEA [None]
  - BONE PAIN [None]
  - DRUG WITHDRAWAL SYNDROME [None]
  - DIARRHOEA [None]
  - ASTHMA [None]
  - HYPERHIDROSIS [None]
